FAERS Safety Report 5190867-4 (Version None)
Quarter: 2006Q4

REPORT INFORMATION
  Report Type: 
  Country: None (occurrence: None)
  Receive Date: 20061222
  Receipt Date: 20061211
  Transmission Date: 20070319
  Serious: Yes (Other)
  Sender: FDA-Public Use
  Company Number: US-ROCHE-474848

PATIENT
  Age: 55 Year
  Sex: Male

DRUGS (2)
  1. PEGASYS [Suspect]
     Dosage: ROUTE- INJECTION.
     Route: 050
     Dates: start: 20061103
  2. COPEGUS [Suspect]
     Route: 048
     Dates: start: 20061103

REACTIONS (2)
  - RETINAL EXUDATES [None]
  - VISION BLURRED [None]
